FAERS Safety Report 8558415 (Version 3)
Quarter: 2012Q4

REPORT INFORMATION
  Report Type: 
  Country: US (occurrence: US)
  Receive Date: 20120511
  Receipt Date: 20121205
  Transmission Date: 20130627
  Serious: Yes (Hospitalization, Other)
  Sender: FDA-Public Use
  Company Number: US-VIROPHARMA INCORPORATED-20120423CINRY2907

PATIENT
  Age: 35 None
  Sex: Female
  Weight: 72.64 kg

DRUGS (9)
  1. CINRYZE (C1 ESTERASE INHIBITOR (HUMAN)) [Suspect]
     Indication: HEREDITARY ANGIOEDEMA
     Dates: start: 2008, end: 201109
  2. CINRYZE (C1 ESTERASE INHIBITOR (HUMAN)) [Suspect]
     Dates: start: 201109
  3. PHENOBARBITAL [Concomitant]
     Indication: EPILEPSY
     Route: 048
     Dates: start: 2001
  4. HEPARIN LOCK FLUSH [Concomitant]
     Indication: CENTRAL VENOUS CATHETERISATION
     Dates: start: 201002
  5. PRENATAL VITAMINS [Concomitant]
     Indication: PREGNANCY
     Dosage: UNKNOWN
     Route: 048
     Dates: start: 2008
  6. PRENATAL VITAMINS [Concomitant]
     Indication: MEDICAL DIET
  7. FOLIC ACID [Concomitant]
     Indication: PREGNANCY
     Route: 048
     Dates: start: 2008, end: 20120404
  8. PROGESTERONE [Concomitant]
     Indication: IN VITRO FERTILISATION
     Route: 030
     Dates: start: 20110717, end: 20111009
  9. ESTROGEN PATCHES [Concomitant]
     Indication: IN VITRO FERTILISATION
     Route: 062
     Dates: start: 20110703, end: 20111009

REACTIONS (8)
  - Abortion spontaneous [Recovered/Resolved]
  - Retained placenta or membranes [Recovered/Resolved]
  - Exposure during pregnancy [Recovered/Resolved]
  - Hereditary angioedema [Recovered/Resolved]
  - Gestational diabetes [Recovered/Resolved]
  - Intrauterine infection [Recovered/Resolved]
  - Off label use [Recovered/Resolved]
  - Uterine disorder [Not Recovered/Not Resolved]
